FAERS Safety Report 7458725-X (Version None)
Quarter: 2011Q2

REPORT INFORMATION
  Report Type: 
  Country: None (occurrence: None)
  Receive Date: 20110504
  Receipt Date: 20110421
  Transmission Date: 20111010
  Serious: No
  Sender: FDA-Public Use
  Company Number: US-B.I. PHARMACEUTICALS,INC./RIDGEFIELD-2011-BP-06700BP

PATIENT
  Sex: Male

DRUGS (7)
  1. PRADAXA [Suspect]
     Indication: ATRIAL FIBRILLATION
     Dosage: 300 MG
     Route: 048
     Dates: start: 20110101
  2. BETA BLOCKER [Concomitant]
  3. ACETAMINOPHEN [Concomitant]
  4. PLAVIX [Concomitant]
  5. CRESTOR [Concomitant]
  6. NEXIUM [Concomitant]
     Indication: GASTROOESOPHAGEAL REFLUX DISEASE
     Route: 048
  7. DIOVAN [Concomitant]

REACTIONS (8)
  - FATIGUE [None]
  - ABDOMINAL PAIN [None]
  - DIZZINESS [None]
  - ABDOMINAL DISCOMFORT [None]
  - SOMNOLENCE [None]
  - DECREASED APPETITE [None]
  - DYSPEPSIA [None]
  - MALAISE [None]
